FAERS Safety Report 6440408-6 (Version None)
Quarter: 2009Q4

REPORT INFORMATION
  Report Type: 
  Country: None (occurrence: None)
  Receive Date: 20091113
  Receipt Date: 20091111
  Transmission Date: 20100525
  Serious: Yes (Death, Hospitalization)
  Sender: FDA-Public Use
  Company Number: PHHY2009GB49244

PATIENT
  Sex: Female

DRUGS (4)
  1. ZOMETA [Suspect]
     Indication: METASTASES TO BONE
  2. NAVELBINE [Suspect]
     Indication: BREAST CANCER METASTATIC
     Route: 048
  3. NAVELBINE [Suspect]
     Dosage: UNK
     Route: 048
  4. ABRAXANE [Suspect]
     Indication: BREAST CANCER METASTATIC
     Route: 042

REACTIONS (3)
  - DEATH [None]
  - HEPATIC FAILURE [None]
  - PANCYTOPENIA [None]
